FAERS Safety Report 7770111-1 (Version None)
Quarter: 2011Q3

REPORT INFORMATION
  Report Type: 
  Country: None (occurrence: None)
  Receive Date: 20110922
  Receipt Date: 20110915
  Transmission Date: 20111222
  Serious: Yes (Other)
  Sender: FDA-Public Use
  Company Number: IE-ROCHE-791653

PATIENT
  Sex: Female
  Weight: 100 kg

DRUGS (4)
  1. PREDNISOLONE [Concomitant]
     Route: 048
     Dates: end: 20100610
  2. ACTEMRA [Suspect]
     Indication: RHEUMATOID ARTHRITIS
     Dosage: FORM: INFUSION. TOTAL MONTHLY DOSE: 771.2 MG
     Route: 042
     Dates: start: 20100415, end: 20101201
  3. ACTEMRA [Suspect]
     Dosage: FORM: INFUSION.
     Route: 042
     Dates: start: 20101201, end: 20110303
  4. PREDNISOLONE [Concomitant]
     Route: 048
     Dates: start: 20100610

REACTIONS (9)
  - ALANINE AMINOTRANSFERASE INCREASED [None]
  - VESSEL PUNCTURE SITE HAEMATOMA [None]
  - HIGH DENSITY LIPOPROTEIN INCREASED [None]
  - HEPATIC STEATOSIS [None]
  - FUNGAL INFECTION [None]
  - URINE ANALYSIS ABNORMAL [None]
  - LIVER FUNCTION TEST ABNORMAL [None]
  - BREAST TENDERNESS [None]
  - ANAEMIA [None]
